FAERS Safety Report 4352691-1 (Version None)
Quarter: 2004Q2

REPORT INFORMATION
  Report Type: 
  Country: None (occurrence: None)
  Receive Date: 20040429
  Receipt Date: 20040423
  Transmission Date: 20050107
  Serious: Yes (Other)
  Sender: FDA-Public Use
  Company Number: 2004210437US

PATIENT
  Age: 63 Year
  Sex: Female

DRUGS (4)
  1. CELEBREX [Suspect]
     Indication: ARTHRALGIA
     Dosage: 100 MG, QD
     Dates: start: 20020101, end: 20031001
  2. COZAAR (LOSARTAN POTASSIUIM) [Concomitant]
  3. PEPCID [Concomitant]
  4. CELEXA [Concomitant]

REACTIONS (1)
  - HAEMORRHAGE [None]
